FAERS Safety Report 25234503 (Version 1)
Quarter: 2025Q2

REPORT INFORMATION
  Report Type: Spontaneous
  Country: IT (occurrence: IT)
  Receive Date: 20250424
  Receipt Date: 20250424
  Transmission Date: 20250716
  Serious: Yes (Hospitalization)
  Sender: AMGEN
  Company Number: IT-AMGEN-ITASP2025077401

PATIENT
  Age: 41 Year
  Sex: Female

DRUGS (20)
  1. ECULIZUMAB [Suspect]
     Active Substance: ECULIZUMAB
     Indication: Pyrexia
     Route: 065
  2. ECULIZUMAB [Suspect]
     Active Substance: ECULIZUMAB
     Indication: Thrombotic microangiopathy
  3. PREDNISONE [Concomitant]
     Active Substance: PREDNISONE
  4. PREDNISONE [Concomitant]
     Active Substance: PREDNISONE
     Dates: start: 2023
  5. PREDNISONE [Concomitant]
     Active Substance: PREDNISONE
     Dosage: 50 MILLIGRAM, QD
  6. PREDNISONE [Concomitant]
     Active Substance: PREDNISONE
     Dosage: 10 MILLIGRAM, QD
     Dates: start: 202409
  7. AZATHIOPRINE [Concomitant]
     Active Substance: AZATHIOPRINE
  8. CYCLOSPORINE [Concomitant]
     Active Substance: CYCLOSPORINE
  9. METHOTREXATE [Concomitant]
     Active Substance: METHOTREXATE
  10. INFLIXIMAB [Concomitant]
     Active Substance: INFLIXIMAB
  11. AZITHROMYCIN [Concomitant]
     Active Substance: AZITHROMYCIN
  12. CEFIXIME [Concomitant]
     Active Substance: CEFIXIME
  13. PIPERACILLIN AND TAZOBACTAM [Concomitant]
     Active Substance: PIPERACILLIN SODIUM\TAZOBACTAM SODIUM
  14. TEICOPLANIN [Concomitant]
     Active Substance: TEICOPLANIN
  15. METHYLPREDNISOLONE [Concomitant]
     Active Substance: METHYLPREDNISOLONE
     Dosage: 2 MILLIGRAM/KILOGRAM, QD
  16. ANAKINRA [Concomitant]
     Active Substance: ANAKINRA
     Dosage: 1200 MILLIGRAM, QD
  17. HUMAN IMMUNOGLOBULIN G [Concomitant]
     Active Substance: HUMAN IMMUNOGLOBULIN G
     Dosage: 1 GRAM PER KILOGRAM, QD
     Route: 040
  18. MEROPENEM [Concomitant]
     Active Substance: MEROPENEM
  19. LEVOFLOXACIN [Concomitant]
     Active Substance: LEVOFLOXACIN
  20. CASPOFUNGIN [Concomitant]
     Active Substance: CASPOFUNGIN

REACTIONS (6)
  - Fungal sepsis [Unknown]
  - Small intestinal haemorrhage [Unknown]
  - Anaemia [Unknown]
  - Haemophagocytic lymphohistiocytosis [Unknown]
  - Drug ineffective for unapproved indication [Unknown]
  - Off label use [Unknown]
